FAERS Safety Report 7933067-4 (Version None)
Quarter: 2011Q4

REPORT INFORMATION
  Report Type: 
  Country: None (occurrence: None)
  Receive Date: 20111122
  Receipt Date: 20111117
  Transmission Date: 20120403
  Serious: Yes (Congenital Anomaly, Other)
  Sender: FDA-Public Use
  Company Number: GXKR2011DE003346

PATIENT

DRUGS (4)
  1. VOMEX A ^YAMANOUCHI^ [Concomitant]
     Dosage: MATERNAL DOSE: BETWEEN GW 9 AND 17 PROBABLY ONLY TWICE TAKEN
     Route: 064
     Dates: end: 20110303
  2. LORAZEPAM [Concomitant]
     Dosage: MATERNAL DOSE: 0.5 [MG/D ]
     Route: 064
  3. SERTRALINE HYDROCHLORIDE [Suspect]
     Dosage: MATERNAL DOSE: 75 MG/DAY UNTIL 18JAN2011, THEN 100 MG/DAY
     Route: 064
  4. FOLIC ACID [Concomitant]
     Dosage: MATERNAL DOSE: 0.8 [MG/D ]
     Route: 064
     Dates: start: 20101104

REACTIONS (8)
  - ATRIAL SEPTAL DEFECT [None]
  - LARGE FOR DATES BABY [None]
  - FOETAL EXPOSURE DURING PREGNANCY [None]
  - PETECHIAE [None]
  - HAEMANGIOMA CONGENITAL [None]
  - TRANSAMINASES INCREASED [None]
  - DRUG WITHDRAWAL SYNDROME NEONATAL [None]
  - NEONATAL RESPIRATORY DISTRESS SYNDROME [None]
